FAERS Safety Report 20719428 (Version 1)
Quarter: 2022Q2

REPORT INFORMATION
  Report Type: Spontaneous
  Country: US (occurrence: None)
  Receive Date: 20220416
  Receipt Date: 20220416
  Transmission Date: 20220720
  Serious: No
  Sender: FDA-Public Use
  Company Number: None

PATIENT
  Sex: Male
  Weight: 98.6 kg

DRUGS (5)
  1. DEXAMETHASONE [Suspect]
     Active Substance: DEXAMETHASONE
  2. ONCASPAR [Concomitant]
     Active Substance: PEGASPARGASE
  3. DOXORUBICIN HYDROCHLORIDE [Concomitant]
  4. METHOTREXATE [Concomitant]
  5. VINCRISTINE SULFATE [Concomitant]

REACTIONS (15)
  - Thirst [None]
  - Abdominal pain [None]
  - Polyuria [None]
  - Hyperglycaemia [None]
  - Electrolyte imbalance [None]
  - Blood sodium increased [None]
  - Blood bicarbonate decreased [None]
  - Blood osmolarity increased [None]
  - Blood urea increased [None]
  - Blood creatinine increased [None]
  - Ketonuria [None]
  - Glycosuria [None]
  - Hyperglycaemia [None]
  - Diabetic ketoacidosis [None]
  - Diabetic hyperosmolar coma [None]

NARRATIVE: CASE EVENT DATE: 20220404
